FAERS Safety Report 8875970 (Version 1)
Quarter: 2012Q4

REPORT INFORMATION
  Report Type: 
  Country: CH (occurrence: CH)
  Receive Date: 20121030
  Receipt Date: 20121030
  Transmission Date: 20130627
  Serious: Yes (Hospitalization)
  Sender: FDA-Public Use
  Company Number: PHHY2012CH095915

PATIENT
  Age: 86 None
  Sex: Female
  Weight: 67.1 kg

DRUGS (10)
  1. ANAFRANIL [Suspect]
     Dosage: 37.5 mg (in the morning) daily
     Route: 048
  2. ANAFRANIL [Interacting]
     Dosage: 75 mg, at noon, daily
  3. ZOLPIDEM [Interacting]
     Dosage: 20 mg, daily
     Route: 048
  4. ALENDRONATE [Suspect]
     Dosage: 9.8 mg, (70mg weekly)
     Route: 048
  5. CALCIMAGON D3 [Concomitant]
  6. GUTRON [Concomitant]
  7. ASPIRIN CARDIO [Concomitant]
  8. MORPHINE [Concomitant]
     Indication: PAIN
     Route: 048
     Dates: start: 20120531, end: 20120602
  9. DAFALGAN [Concomitant]
     Indication: PAIN
     Dates: start: 20120602
  10. PROLIA [Concomitant]
     Dates: start: 20120704

REACTIONS (5)
  - Fall [Unknown]
  - Pelvic fracture [Recovering/Resolving]
  - Clavicle fracture [Recovering/Resolving]
  - Osteopenia [Unknown]
  - Drug ineffective [Unknown]
